FAERS Safety Report 6077659-9 (Version None)
Quarter: 2009Q1

REPORT INFORMATION
  Report Type: 
  Country: None (occurrence: None)
  Receive Date: 20090213
  Receipt Date: 20090205
  Transmission Date: 20090719
  Serious: Yes (Life-Threatening, Hospitalization, Other)
  Sender: FDA-Public Use
  Company Number: US-JNJFOC-20090202447

PATIENT
  Age: 46 Year
  Sex: Male

DRUGS (7)
  1. REMICADE [Suspect]
     Route: 042
  2. REMICADE [Suspect]
     Indication: CROHN'S DISEASE
     Route: 042
  3. PREDNISONE [Concomitant]
  4. PREDNISONE [Concomitant]
  5. MESALAMINE [Concomitant]
  6. WARFARIN SODIUM [Concomitant]
  7. TPN [Concomitant]

REACTIONS (3)
  - DEEP VEIN THROMBOSIS [None]
  - HISTOPLASMOSIS DISSEMINATED [None]
  - PULMONARY EMBOLISM [None]
